FAERS Safety Report 9507591 (Version 1)
Quarter: 2013Q3

REPORT INFORMATION
  Report Type: Spontaneous
  Country: US (occurrence: US)
  Receive Date: 20130909
  Receipt Date: 20130909
  Transmission Date: 20140515
  Serious: Yes (Hospitalization, Disabling, Other)
  Sender: FDA-Public Use
  Company Number: US-009507513-1308USA014220

PATIENT
  Sex: Female

DRUGS (2)
  1. FOSAMAX [Suspect]
     Indication: OSTEOPOROSIS
     Dosage: 70 MG, UNK
     Route: 048
     Dates: end: 2005
  2. ASCORBIC ACID [Concomitant]
     Dosage: 1000 MG, QD
     Dates: start: 1998

REACTIONS (9)
  - Femur fracture [Unknown]
  - Paraplegia [Not Recovered/Not Resolved]
  - Vitamin D deficiency [Unknown]
  - Oral surgery [Unknown]
  - Pain [Unknown]
  - Respiratory disorder [Unknown]
  - Depression [Unknown]
  - Thyroid disorder [Unknown]
  - Angiopathy [Unknown]
